FAERS Safety Report 7534802-X (Version None)
Quarter: 2011Q2

REPORT INFORMATION
  Report Type: 
  Country: None (occurrence: None)
  Receive Date: 20110609
  Receipt Date: 20080818
  Transmission Date: 20111010
  Serious: Yes (Other)
  Sender: FDA-Public Use
  Company Number: PHHY2008GB12486

PATIENT
  Sex: Male

DRUGS (4)
  1. CLOZAPINE [Suspect]
     Indication: SCHIZOPHRENIA
     Dosage: 675 MG, DAILY
     Dates: start: 19930127
  2. CLOZAPINE [Suspect]
     Dosage: 67 MG
     Route: 048
     Dates: start: 20061103
  3. VALPROATE SODIUM [Concomitant]
     Indication: EPILEPSY
     Dosage: 1200 MG, UNK
     Route: 048
     Dates: start: 20061018
  4. LEVETIRACETAM [Concomitant]
     Indication: EPILEPSY
     Dosage: 250 MG, UNK
     Route: 048
     Dates: start: 20070117

REACTIONS (6)
  - AUTISM SPECTRUM DISORDER [None]
  - LEARNING DISABILITY [None]
  - INFLUENZA LIKE ILLNESS [None]
  - EPILEPSY [None]
  - SCHIZOPHRENIA, PARANOID TYPE [None]
  - URINARY TRACT INFECTION [None]
